FAERS Safety Report 10139097 (Version 2)
Quarter: 2014Q2

REPORT INFORMATION
  Report Type: Spontaneous
  Country: US (occurrence: US)
  Receive Date: 20140429
  Receipt Date: 20140515
  Transmission Date: 20141212
  Serious: Yes (Other)
  Sender: FDA-Public Use
  Company Number: US-TAKEDA-2014TUS003174

PATIENT
  Sex: Female
  Weight: 127.44 kg

DRUGS (9)
  1. BRINTELLIX [Suspect]
     Indication: DEPRESSION
     Dosage: 10 MG, QD/AM
     Route: 048
     Dates: start: 2014, end: 2014
  2. BRINTELLIX [Suspect]
     Indication: ANXIETY
     Dosage: 10 MG, QD/AM
     Route: 048
     Dates: start: 2014
  3. UNKNOWN BETA BLOCKER [Concomitant]
     Dosage: UNK
  4. NEXIUM                             /01479302/ [Concomitant]
     Indication: GASTROOESOPHAGEAL REFLUX DISEASE
     Dosage: 40 MG, QD
     Dates: start: 20121121
  5. UNKNOWN ASTHMA MEDICATION [Concomitant]
     Indication: ASTHMA
     Dosage: UNK
  6. TOPAMAX [Concomitant]
     Indication: MIGRAINE
     Dosage: 100 MG, QD
     Dates: start: 20121121
  7. VESICARE [Concomitant]
     Dosage: UNK
  8. HYDROCODONE                        /00060002/ [Concomitant]
     Indication: BACK PAIN
     Dosage: 7.5 MG, QD
     Dates: start: 20121121
  9. BISOPROLOL [Concomitant]
     Indication: HYPERTENSION
     Dosage: 5 MG, QD
     Dates: start: 20121121

REACTIONS (5)
  - Suicidal ideation [Recovering/Resolving]
  - Decreased appetite [Unknown]
  - Anxiety [Unknown]
  - Affect lability [Recovering/Resolving]
  - Fear [Recovering/Resolving]
